FAERS Safety Report 25391926 (Version 4)
Quarter: 2025Q3

REPORT INFORMATION
  Report Type: Spontaneous
  Country: EU (occurrence: EU)
  Receive Date: 20250603
  Receipt Date: 20250725
  Transmission Date: 20251021
  Serious: Yes (Other)
  Sender: PFIZER
  Company Number: EU-JNJFOC-20250509400

PATIENT
  Age: 71 Year
  Sex: Female
  Weight: 70 kg

DRUGS (9)
  1. CARBOPLATIN [Suspect]
     Active Substance: CARBOPLATIN
     Indication: Non-small cell lung cancer metastatic
     Route: 042
     Dates: start: 202502
  2. CARBOPLATIN [Suspect]
     Active Substance: CARBOPLATIN
     Dates: start: 20250303
  3. PEMETREXED [Suspect]
     Active Substance: PEMETREXED
     Indication: Non-small cell lung cancer metastatic
     Route: 042
     Dates: start: 202502
  4. PEMETREXED [Suspect]
     Active Substance: PEMETREXED
     Dates: start: 20250303
  5. AMIVANTAMAB [Suspect]
     Active Substance: AMIVANTAMAB
     Indication: Non-small cell lung cancer metastatic
     Dates: start: 202502
  6. AMIVANTAMAB [Suspect]
     Active Substance: AMIVANTAMAB
     Route: 065
     Dates: start: 20250303, end: 20250414
  7. AMIVANTAMAB [Suspect]
     Active Substance: AMIVANTAMAB
     Route: 065
     Dates: start: 20250623
  8. OSIMERTINIB [Concomitant]
     Active Substance: OSIMERTINIB
  9. DOXYCYCLINE [Concomitant]
     Active Substance: DOXYCYCLINE
     Indication: Dermatitis acneiform

REACTIONS (10)
  - Deep vein thrombosis [Unknown]
  - Haematotoxicity [Unknown]
  - Renal failure [Unknown]
  - Thrombocytopenia [Unknown]
  - Rash [Unknown]
  - Dermatitis acneiform [Recovering/Resolving]
  - Nausea [Not Recovered/Not Resolved]
  - Oedema peripheral [Unknown]
  - Superficial vein thrombosis [Unknown]
  - Off label use [Unknown]

NARRATIVE: CASE EVENT DATE: 20250201
